FAERS Safety Report 21866058 (Version 2)
Quarter: 2023Q1

REPORT INFORMATION
  Report Type: Report from Study
  Country: US (occurrence: US)
  Receive Date: 20230116
  Receipt Date: 20230328
  Transmission Date: 20230417
  Serious: Yes (Other)
  Sender: FDA-Public Use
  Company Number: US-ABBVIE-4269399

PATIENT
  Age: 68 Year
  Sex: Female
  Weight: 67.131 kg

DRUGS (12)
  1. HUMIRA [Suspect]
     Active Substance: ADALIMUMAB
     Indication: Rheumatoid arthritis
     Dosage: DRUG FIRST ADMIN DATE: THREE TO FOUR YEARS AGO
     Route: 058
     Dates: start: 20230111
  2. LYRICA [Concomitant]
     Active Substance: PREGABALIN
     Indication: Neuralgia
  3. MAGNESIUM [Concomitant]
     Active Substance: MAGNESIUM
     Indication: Product used for unknown indication
  4. PREDNISONE [Concomitant]
     Active Substance: PREDNISONE
     Indication: Pain in extremity
  5. VITAMIN C [Concomitant]
     Active Substance: ASCORBIC ACID
     Indication: Product used for unknown indication
  6. ATORVASTATIN [Concomitant]
     Active Substance: ATORVASTATIN
     Indication: Product used for unknown indication
  7. centrum womens 50+ [Concomitant]
     Indication: Product used for unknown indication
  8. GERI-DRYL [Concomitant]
     Active Substance: DIPHENHYDRAMINE HYDROCHLORIDE
     Indication: Hypersensitivity
  9. CALCIUM [Concomitant]
     Active Substance: CALCIUM
     Indication: Product used for unknown indication
  10. HYDROXYCHLOROQUINE SULFATE [Concomitant]
     Active Substance: HYDROXYCHLOROQUINE SULFATE
     Indication: Rheumatoid arthritis
  11. TRAMADOL [Concomitant]
     Active Substance: TRAMADOL
     Indication: Pain in extremity
  12. MELOXICAM [Concomitant]
     Active Substance: MELOXICAM
     Indication: Rheumatoid arthritis

REACTIONS (6)
  - Limb injury [Recovering/Resolving]
  - Pain in extremity [Not Recovered/Not Resolved]
  - Balance disorder [Recovering/Resolving]
  - Joint injury [Recovering/Resolving]
  - Gait disturbance [Recovering/Resolving]
  - Foot deformity [Recovering/Resolving]

NARRATIVE: CASE EVENT DATE: 20220501
